FAERS Safety Report 17384146 (Version 1)
Quarter: 2020Q1

REPORT INFORMATION
  Report Type: Spontaneous
  Country: US (occurrence: US)
  Receive Date: 20200206
  Receipt Date: 20200206
  Transmission Date: 20200409
  Serious: No
  Sender: FDA-Public Use
  Company Number: US-ABBVIE-19K-163-2828045-00

PATIENT
  Age: 31 Year
  Sex: Female

DRUGS (2)
  1. BUPROPION XL [Concomitant]
     Active Substance: BUPROPION
     Indication: DEPRESSION
  2. HUMIRA [Suspect]
     Active Substance: ADALIMUMAB
     Indication: PSORIASIS
     Route: 058
     Dates: start: 201712

REACTIONS (6)
  - Injection site urticaria [Recovered/Resolved]
  - Incorrect dose administered [Unknown]
  - Injection site papule [Unknown]
  - Injection site bruising [Recovered/Resolved]
  - Injection site reaction [Unknown]
  - Device issue [Unknown]

NARRATIVE: CASE EVENT DATE: 20190618
